FAERS Safety Report 5704768-3 (Version None)
Quarter: 2008Q2

REPORT INFORMATION
  Report Type: 
  Country: None (occurrence: None)
  Receive Date: 20080414
  Receipt Date: 20080404
  Transmission Date: 20081010
  Serious: Yes (Death, Hospitalization, Other)
  Sender: FDA-Public Use
  Company Number: US-PFIZER INC-2007089134

PATIENT
  Sex: Female

DRUGS (2)
  1. CHANTIX [Suspect]
  2. LIPITOR [Suspect]

REACTIONS (3)
  - ARTERIAL OCCLUSIVE DISEASE [None]
  - CHEST PAIN [None]
  - DEATH [None]
